FAERS Safety Report 9718098 (Version 2)
Quarter: 2013Q4

REPORT INFORMATION
  Report Type: Spontaneous
  Country: US (occurrence: US)
  Receive Date: 20131125
  Receipt Date: 20131125
  Transmission Date: 20140711
  Serious: No
  Sender: FDA-Public Use
  Company Number: US-VIVUS-2013V1000249

PATIENT
  Age: 49 Year
  Sex: Female
  Weight: 98.52 kg

DRUGS (3)
  1. QSYMIA 7.5MG/46MG [Suspect]
     Indication: OBESITY
     Route: 048
  2. QSYMIA 3.75MG/23MG [Suspect]
     Indication: OBESITY
     Route: 048
  3. UNSPECIFIED BIRTH CONTROL [Concomitant]
     Indication: CONTRACEPTION

REACTIONS (3)
  - Metrorrhagia [Recovered/Resolved]
  - Dry mouth [Not Recovered/Not Resolved]
  - Blood potassium decreased [Recovering/Resolving]
